FAERS Safety Report 5243726-2 (Version None)
Quarter: 2007Q1

REPORT INFORMATION
  Report Type: 
  Country: None (occurrence: None)
  Receive Date: 20070222
  Receipt Date: 20070213
  Transmission Date: 20070707
  Serious: Yes (Other)
  Sender: FDA-Public Use
  Company Number: PHBS2006CH13792

PATIENT
  Sex: Female

DRUGS (4)
  1. ZOMETA [Suspect]
     Indication: BREAST CANCER
     Dosage: UNK, UNK
     Route: 042
     Dates: start: 20050801, end: 20060801
  2. CHEMOTHERAPEUTICS,OTHER [Concomitant]
     Route: 065
  3. CORTICOSTEROIDS [Concomitant]
     Route: 065
  4. AREDIA [Suspect]
     Indication: BREAST CANCER
     Dosage: UNK, UNK
     Route: 042
     Dates: start: 20010101, end: 20030101

REACTIONS (8)
  - BONE DISORDER [None]
  - DENTAL TREATMENT [None]
  - INCISIONAL DRAINAGE [None]
  - MANDIBULECTOMY [None]
  - OSTEONECROSIS [None]
  - PAIN IN JAW [None]
  - PARAESTHESIA [None]
  - TOOTH EXTRACTION [None]
